FAERS Safety Report 8399725-5 (Version None)
Quarter: 2012Q2

REPORT INFORMATION
  Report Type: 
  Country: None (occurrence: None)
  Receive Date: 20120323
  Receipt Date: 20110720
  Transmission Date: 20120825
  Serious: Yes (Hospitalization)
  Sender: FDA-Public Use
  Company Number: 163-21880-11072476

PATIENT
  Age: 64 Year
  Sex: Male
  Weight: 159.2126 kg

DRUGS (15)
  1. ALLOPURINOL [Concomitant]
  2. FERROUS SULFATE TAB [Concomitant]
  3. LISINOPRIL/HCTZ (PRINZIDE) (UNKNOWN) [Concomitant]
  4. REVLIMID [Suspect]
     Indication: MULTIPLE MYELOMA
     Dosage: 25 MG, DAILY FOR 21 DAYS WITH 7 DAYS OFF, PO
     Route: 048
     Dates: start: 20110701
  5. KLOR-CON (POTASSIUM CHLORIDE) (UNKNOWN) [Concomitant]
  6. MORPHINE SULFATE [Concomitant]
  7. METFORMIN HCL [Concomitant]
  8. VITAMIN D (ERGOCALCIFEROL) (UNKNOWN) [Concomitant]
  9. SOTALOL (SOTALOL) (UNKNOWN) [Concomitant]
  10. MIRALAX (MACROGOL) (UNKNOWN) [Concomitant]
  11. OXYCODONE (OXYCODONE) (UNKNOWN) [Concomitant]
  12. PRILOSEC (OMEPRAZOLE) (UNKNOWN) [Concomitant]
  13. COLACE (DOCUSATE SODIUM) [Suspect]
     Indication: PRODUCT USED FOR UNKNOWN INDICATION
     Dosage: UNKNOWN
  14. DECADRON [Concomitant]
  15. WARFARIN SODIUM [Concomitant]

REACTIONS (1)
  - PNEUMONIA [None]
